FAERS Safety Report 8310590-4 (Version None)
Quarter: 2012Q2

REPORT INFORMATION
  Report Type: 
  Country: None (occurrence: None)
  Receive Date: 20120425
  Receipt Date: 20120425
  Transmission Date: 20120825
  Serious: Yes (Other)
  Sender: FDA-Public Use
  Company Number: None

PATIENT
  Age: 52 Year
  Sex: Male
  Weight: 835.51 kg

DRUGS (1)
  1. OLANZAPINE [Suspect]
     Indication: AGITATION
     Dosage: 10MG
     Route: 030
     Dates: start: 20120319, end: 20120319

REACTIONS (6)
  - POSTURE ABNORMAL [None]
  - RESPIRATORY RATE DECREASED [None]
  - PALLOR [None]
  - HYPOPNOEA [None]
  - BLOOD PRESSURE DECREASED [None]
  - HEART RATE DECREASED [None]
